FAERS Safety Report 5251676-0 (Version None)
Quarter: 2007Q1

REPORT INFORMATION
  Report Type: 
  Country: None (occurrence: None)
  Receive Date: 20070228
  Receipt Date: 20061009
  Transmission Date: 20070707
  Serious: No
  Sender: FDA-Public Use
  Company Number: US-GLAXOSMITHKLINE-A0622933A

PATIENT
  Sex: Female

DRUGS (3)
  1. LAMICTAL [Suspect]
     Indication: ANXIETY
     Route: 048
     Dates: start: 20040101
  2. ZOLOFT [Concomitant]
  3. SLEEPING PILL [Concomitant]

REACTIONS (4)
  - PURPURA [None]
  - RASH PRURITIC [None]
  - SKIN BURNING SENSATION [None]
  - SKIN CHAPPED [None]
